FAERS Safety Report 20604753 (Version 7)
Quarter: 2024Q4

REPORT INFORMATION
  Report Type: Report from Study
  Country: US (occurrence: US)
  Receive Date: 20220317
  Receipt Date: 20241024
  Transmission Date: 20250115
  Serious: Yes (Other)
  Sender: ROCHE
  Company Number: US-ROCHE-3047647

PATIENT
  Age: 43 Year
  Sex: Female

DRUGS (32)
  1. OCRELIZUMAB [Suspect]
     Active Substance: OCRELIZUMAB
     Indication: Multiple sclerosis
     Dosage: 12/OCT/2021, SECOND INFUSION
     Route: 042
     Dates: start: 20210927
  2. OCRELIZUMAB [Suspect]
     Active Substance: OCRELIZUMAB
     Route: 042
     Dates: start: 20220328
  3. OCRELIZUMAB [Suspect]
     Active Substance: OCRELIZUMAB
     Route: 042
     Dates: start: 20221010
  4. OCRELIZUMAB [Suspect]
     Active Substance: OCRELIZUMAB
     Route: 042
     Dates: start: 20230410
  5. AMITRIPTYLINE [Concomitant]
     Active Substance: AMITRIPTYLINE
     Dates: start: 2012, end: 20230530
  6. CLONAZEPAM [Concomitant]
     Active Substance: CLONAZEPAM
     Dates: start: 20220226, end: 20220302
  7. BACLOFEN [Concomitant]
     Active Substance: BACLOFEN
     Dates: start: 20210126
  8. FLOVENT [Concomitant]
     Active Substance: FLUTICASONE PROPIONATE
     Dates: start: 20210721
  9. IBUPROFEN [Concomitant]
     Active Substance: IBUPROFEN
     Dates: start: 20210812, end: 20211029
  10. LORAZEPAM [Concomitant]
     Active Substance: LORAZEPAM
     Dates: start: 20210829, end: 20220603
  11. MODAFINIL [Concomitant]
     Active Substance: MODAFINIL
     Dates: start: 20210923, end: 20220324
  12. COVID-19 VACCINE [Concomitant]
     Dates: start: 20210308, end: 20210308
  13. COVID-19 VACCINE [Concomitant]
     Dates: start: 20210331, end: 20210331
  14. COVID-19 VACCINE [Concomitant]
     Dates: start: 20210902, end: 20210902
  15. BETAMETHASONE DIPROPIONATE [Concomitant]
     Active Substance: BETAMETHASONE DIPROPIONATE
     Dates: start: 2020, end: 20231006
  16. VITAMIN D3 [Concomitant]
     Active Substance: CHOLECALCIFEROL
     Dates: start: 2016
  17. LISINOPRIL [Concomitant]
     Active Substance: LISINOPRIL
     Dates: start: 2001, end: 2022
  18. TOPIRAMATE [Concomitant]
     Active Substance: TOPIRAMATE
     Dates: start: 2001
  19. OMEGA 3 [Concomitant]
     Active Substance: CAPSAICIN
     Dates: start: 2021
  20. ONABOTULINUMTOXINA [Concomitant]
     Active Substance: ONABOTULINUMTOXINA
     Dates: start: 2021
  21. AJOVY [Concomitant]
     Active Substance: FREMANEZUMAB-VFRM
     Dates: start: 2021, end: 20230111
  22. ACYCLOVIR [Concomitant]
     Active Substance: ACYCLOVIR
     Dates: start: 2018
  23. SUMATRIPTAN [Concomitant]
     Active Substance: SUMATRIPTAN
     Dates: start: 2004
  24. SINGULAIR [Concomitant]
     Active Substance: MONTELUKAST SODIUM
     Dates: start: 2022
  25. NASONEX [Concomitant]
     Active Substance: MOMETASONE FUROATE
     Dates: start: 2015
  26. ALBUTEROL [Concomitant]
     Active Substance: ALBUTEROL
     Dates: start: 2020
  27. LEXAPRO [Concomitant]
     Active Substance: ESCITALOPRAM OXALATE
     Dates: start: 2002, end: 20220603
  28. ZOFRAN [Concomitant]
     Active Substance: ONDANSETRON HYDROCHLORIDE
     Dates: start: 2022
  29. PHENERGAN [Concomitant]
     Active Substance: PROMETHAZINE HYDROCHLORIDE
     Dates: start: 2015, end: 20220309
  30. PEPCID [Concomitant]
     Active Substance: FAMOTIDINE
     Dates: start: 2022
  31. DIFLUCAN [Concomitant]
     Active Substance: FLUCONAZOLE
     Dates: start: 2022, end: 20220309
  32. CHOLESTYRAMINE [Concomitant]
     Active Substance: CHOLESTYRAMINE
     Dates: start: 20220215, end: 20220220

REACTIONS (1)
  - COVID-19 [Recovered/Resolved]

NARRATIVE: CASE EVENT DATE: 20220126
